FAERS Safety Report 8764807 (Version 1)
Quarter: 2012Q4

REPORT INFORMATION
  Report Type: 
  Country: US (occurrence: US)
  Receive Date: 20120831
  Receipt Date: 20120831
  Transmission Date: 20130627
  Serious: No
  Sender: FDA-Public Use
  Company Number: US-ASTRAZENECA-2012SE58050

PATIENT
  Sex: Female

DRUGS (1)
  1. CRESTOR [Suspect]
     Indication: BILIARY CIRRHOSIS PRIMARY
     Route: 048

REACTIONS (2)
  - Liver function test abnormal [Unknown]
  - Off label use [Unknown]
